FAERS Safety Report 20749035 (Version 2)
Quarter: 2022Q2

REPORT INFORMATION
  Report Type: Spontaneous
  Country: NO (occurrence: None)
  Receive Date: 20220426
  Receipt Date: 20220427
  Transmission Date: 20220721
  Serious: Yes (Hospitalization)
  Sender: FDA-Public Use
  Company Number: 2022A152943

PATIENT
  Age: 61 Year
  Sex: Male

DRUGS (9)
  1. TICAGRELOR [Interacting]
     Active Substance: TICAGRELOR
     Indication: Antiplatelet therapy
     Route: 048
     Dates: start: 20220215, end: 20220306
  2. ATORVASTATIN CALCIUM [Interacting]
     Active Substance: ATORVASTATIN CALCIUM
     Indication: Myocardial infarction
     Route: 048
     Dates: start: 20220215, end: 20220306
  3. ALCOHOL [Concomitant]
     Active Substance: ALCOHOL
     Route: 065
  4. PANTOPRAZOLE SODIUM [Concomitant]
     Active Substance: PANTOPRAZOLE SODIUM
     Indication: Prophylaxis against gastrointestinal ulcer
     Route: 048
     Dates: start: 20220215
  5. CIPRALEX [Concomitant]
     Active Substance: ESCITALOPRAM OXALATE
     Indication: Depression
     Route: 048
     Dates: start: 2009, end: 20220306
  6. ASPIRIN\MAGNESIUM OXIDE [Concomitant]
     Active Substance: ASPIRIN\MAGNESIUM OXIDE
     Indication: Antiplatelet therapy
     Route: 048
     Dates: start: 20220315
  7. NITROLINGUAL [Concomitant]
     Active Substance: NITROGLYCERIN
     Route: 065
  8. LOSARTAN [Concomitant]
     Active Substance: LOSARTAN
     Indication: Hypertension
     Route: 048
     Dates: start: 2021
  9. EBASTINE [Concomitant]
     Active Substance: EBASTINE
     Route: 065

REACTIONS (8)
  - Drug-induced liver injury [Recovering/Resolving]
  - Acute hepatic failure [Recovering/Resolving]
  - Rhabdomyolysis [Recovering/Resolving]
  - Dehydration [Unknown]
  - Diarrhoea [Unknown]
  - Acute kidney injury [Unknown]
  - General physical health deterioration [Unknown]
  - Depressed level of consciousness [Unknown]

NARRATIVE: CASE EVENT DATE: 20220301
